FAERS Safety Report 6089592-7 (Version None)
Quarter: 2009Q1

REPORT INFORMATION
  Report Type: 
  Country: None (occurrence: None)
  Receive Date: 20090224
  Receipt Date: 20090218
  Transmission Date: 20090719
  Serious: Yes (Hospitalization)
  Sender: FDA-Public Use
  Company Number: US-CELGENEUS-163-20785-09021184

PATIENT
  Sex: Male

DRUGS (3)
  1. THALOMID [Suspect]
     Indication: MULTIPLE MYELOMA
     Route: 048
     Dates: start: 20081114
  2. THALOMID [Suspect]
     Route: 048
     Dates: start: 20070402, end: 20081101
  3. THALOMID [Suspect]
     Dosage: 50MG-100MG-200MG
     Route: 048
     Dates: start: 20020204, end: 20070201

REACTIONS (1)
  - CARDIAC DISORDER [None]
